FAERS Safety Report 4419468-X (Version None)
Quarter: 2004Q3

REPORT INFORMATION
  Report Type: 
  Country: None (occurrence: None)
  Receive Date: 20040809
  Receipt Date: 20040202
  Transmission Date: 20050211
  Serious: No
  Sender: FDA-Public Use
  Company Number: US-GLAXOSMITHKLINE-A0496744A

PATIENT
  Age: 23 Year
  Sex: Female
  Weight: 65.5 kg

DRUGS (2)
  1. PAXIL [Suspect]
     Indication: ANXIETY
     Dosage: 20MG PER DAY
     Route: 048
     Dates: start: 20000101
  2. ORTHO EVRA [Concomitant]

REACTIONS (1)
  - BREAST DISCHARGE [None]
